FAERS Safety Report 7203145-6 (Version None)
Quarter: 2010Q4

REPORT INFORMATION
  Report Type: 
  Country: None (occurrence: None)
  Receive Date: 20101229
  Receipt Date: 20101216
  Transmission Date: 20110411
  Serious: Yes (Hospitalization)
  Sender: FDA-Public Use
  Company Number: US-MYLANLABS-2010S1023414

PATIENT
  Age: 22 Year
  Sex: Female

DRUGS (7)
  1. TOPIRAMATE [Suspect]
     Indication: HEADACHE
     Route: 048
  2. METOPROLOL [Concomitant]
     Indication: POSTURAL ORTHOSTATIC TACHYCARDIA SYNDROME
     Route: 065
  3. CLONIDINE [Concomitant]
     Indication: POSTURAL ORTHOSTATIC TACHYCARDIA SYNDROME
     Route: 065
  4. TIZANIDINE HCL [Concomitant]
     Indication: POSTURAL ORTHOSTATIC TACHYCARDIA SYNDROME
     Route: 065
  5. PYRIDOSTIGMINE BROMIDE [Concomitant]
     Indication: POSTURAL ORTHOSTATIC TACHYCARDIA SYNDROME
     Route: 065
  6. GABAPENTIN [Concomitant]
     Indication: MIGRAINE
     Route: 065
  7. OXYCODONE/APAP                     /01601701/ [Concomitant]
     Indication: MIGRAINE
     Route: 065

REACTIONS (4)
  - CONFUSIONAL STATE [None]
  - HYPERTENSION [None]
  - METABOLIC ACIDOSIS [None]
  - TACHYCARDIA [None]
